FAERS Safety Report 20938486 (Version 2)
Quarter: 2022Q2

REPORT INFORMATION
  Report Type: Spontaneous
  Country: US (occurrence: US)
  Receive Date: 20220609
  Receipt Date: 20220623
  Transmission Date: 20220720
  Serious: Yes (Hospitalization)
  Sender: FDA-Public Use
  Company Number: US-TEVA-2022-US-2043530

PATIENT
  Age: 3 Day
  Sex: Male

DRUGS (9)
  1. DIAZOXIDE [Suspect]
     Active Substance: DIAZOXIDE
     Indication: Congenital hyperinsulinaemic hypoglycaemia
     Dosage: 8 MG/KG DAILY;
     Route: 065
  2. DIAZOXIDE [Suspect]
     Active Substance: DIAZOXIDE
     Dosage: 12 MG/KG DAILY;
     Route: 065
  3. DIAZOXIDE [Suspect]
     Active Substance: DIAZOXIDE
     Dosage: 1.5 MG/KG DAILY;
     Route: 065
  4. DEXTROSE [Concomitant]
     Active Substance: DEXTROSE
     Indication: Congenital hyperinsulinaemic hypoglycaemia
     Dosage: GLUCOSE: 10 %
     Route: 040
  5. DEXTROSE [Concomitant]
     Active Substance: DEXTROSE
     Dosage: 19944 MG/KG DAILY; GLUCOSE: 10 %
     Route: 041
  6. DEXTROSE [Concomitant]
     Active Substance: DEXTROSE
     Dosage: 17280 MG/KG DAILY; GLUCOSE: 10 %
     Route: 041
  7. DEXTROSE [Concomitant]
     Active Substance: DEXTROSE
     Dosage: 15998.4 MG/KG DAILY; GLUCOSE: 10 %
     Route: 065
  8. CHLOROTHIAZIDE [Concomitant]
     Active Substance: CHLOROTHIAZIDE
     Indication: Diuretic therapy
     Dosage: 20 MG/KG DAILY;
     Route: 065
  9. CHLOROTHIAZIDE [Concomitant]
     Active Substance: CHLOROTHIAZIDE
     Dosage: 40 MG/KG DAILY;
     Route: 065

REACTIONS (1)
  - Pulmonary oedema [Recovered/Resolved]
